FAERS Safety Report 6462115-6 (Version None)
Quarter: 2009Q4

REPORT INFORMATION
  Report Type: 
  Country: None (occurrence: None)
  Receive Date: 20091130
  Receipt Date: 20091116
  Transmission Date: 20100525
  Serious: Yes (Life-Threatening, Hospitalization)
  Sender: FDA-Public Use
  Company Number: GXKR2009GB12520

PATIENT
  Age: 31 Year
  Sex: Female

DRUGS (10)
  1. LABETALOL (NGX) [Suspect]
     Indication: HYPERTENSION
     Dosage: 200 MG, TID
     Route: 048
  2. ADALAT - SLOW RELEASE [Interacting]
     Indication: HYPERTENSION
     Dosage: 20 MG, ONCE/SINGLE
     Route: 048
  3. PENTASTARCH [Concomitant]
     Dosage: 0.5 L, UNK
  4. PENTASTARCH [Concomitant]
     Dosage: 0.5 L, UNK
  5. KETAMINE HCL [Concomitant]
     Indication: INDUCTION OF ANAESTHESIA
     Dosage: 150 MG, UNK
     Route: 065
  6. SUCCINYLCHOLINE CHLORIDE [Concomitant]
     Dosage: 100 MG, UNK
     Route: 065
  7. NITROUS OXIDE [Concomitant]
     Indication: MAINTENANCE OF ANAESTHESIA
     Route: 065
  8. ISOFLURANE [Concomitant]
     Indication: MAINTENANCE OF ANAESTHESIA
     Route: 065
  9. OXYTOCIN [Concomitant]
     Dosage: 10 U, UNK
     Route: 042
  10. OXYTOCIN [Concomitant]
     Dosage: 10 U, UNK

REACTIONS (16)
  - ABDOMINAL PAIN UPPER [None]
  - ANXIETY [None]
  - BRADYCARDIA [None]
  - CAESAREAN SECTION [None]
  - CAROTID PULSE DECREASED [None]
  - DRUG EXPOSURE DURING PREGNANCY [None]
  - DRUG INTERACTION [None]
  - ESSENTIAL HYPERTENSION [None]
  - HEADACHE [None]
  - HYPOTENSION [None]
  - HYPOVOLAEMIA [None]
  - PALLOR [None]
  - PREMATURE SEPARATION OF PLACENTA [None]
  - PULMONARY CONGESTION [None]
  - PULSE ABSENT [None]
  - VISUAL IMPAIRMENT [None]
